FAERS Safety Report 25285266 (Version 1)
Quarter: 2025Q2

REPORT INFORMATION
  Report Type: Spontaneous
  Country: US (occurrence: US)
  Receive Date: 20250509
  Receipt Date: 20250509
  Transmission Date: 20250716
  Serious: No
  Sender: ROCHE
  Company Number: US-ROCHE-10000274568

PATIENT
  Sex: Female

DRUGS (1)
  1. ACTEMRA [Suspect]
     Active Substance: TOCILIZUMAB
     Indication: Arthritis
     Route: 058

REACTIONS (4)
  - Product dose omission issue [Unknown]
  - Pain in extremity [Unknown]
  - Gait disturbance [Unknown]
  - Product quality issue [Unknown]
